FAERS Safety Report 10185634 (Version 1)
Quarter: 2014Q2

REPORT INFORMATION
  Report Type: Spontaneous
  Country: US (occurrence: None)
  Receive Date: 20140520
  Receipt Date: 20140520
  Transmission Date: 20141212
  Serious: Yes (Hospitalization, Disabling)
  Sender: FDA-Public Use
  Company Number: None

PATIENT
  Age: 54 Year
  Sex: Female
  Weight: 92 kg

DRUGS (7)
  1. ZOMETA [Suspect]
     Indication: METASTASES TO BONE
     Route: 042
     Dates: start: 20100601, end: 20140331
  2. ZOMETA [Suspect]
     Indication: BREAST CANCER
     Route: 042
     Dates: start: 20100601, end: 20140331
  3. ATENOLOL [Concomitant]
  4. HYDROCHLOROTHIAZIDE [Concomitant]
  5. DEXAMETHASONE [Concomitant]
  6. PEGFILGRASTIM [Concomitant]
  7. ESOMEPRAZOLE [Concomitant]

REACTIONS (1)
  - Femur fracture [None]
